FAERS Safety Report 8484587-8 (Version None)
Quarter: 2012Q3

REPORT INFORMATION
  Report Type: 
  Country: None (occurrence: None)
  Receive Date: 20120703
  Receipt Date: 20120323
  Transmission Date: 20120928
  Serious: No
  Sender: FDA-Public Use
  Company Number: US-TEVA-329610USA

PATIENT
  Sex: Female
  Weight: 102.15 kg

DRUGS (12)
  1. CELECOXIB [Concomitant]
     Indication: PAIN
     Dosage: 400 MILLIGRAM;
     Route: 048
  2. FEXOFENADINE [Concomitant]
     Indication: HYPERSENSITIVITY
     Dosage: 180 MILLIGRAM;
     Route: 048
  3. TOPIRAMATE [Concomitant]
     Indication: NEURALGIA
     Dosage: 25 MILLIGRAM;
     Route: 048
  4. NUVIGIL [Suspect]
     Indication: SLEEP APNOEA SYNDROME
     Route: 048
     Dates: start: 20120312
  5. LORAZEPAM [Concomitant]
     Indication: ANXIETY
     Dosage: TID WITH 4TH PRN
     Route: 048
  6. FLUTICASONE PROPIONATE/SALMETEROL [Concomitant]
     Indication: ASTHMA
     Route: 055
  7. FLUOXETINE HYDROCHLORIDE [Concomitant]
     Indication: DEPRESSION
     Dosage: 40 MILLIGRAM;
     Route: 048
  8. COMPOUND FOR MENOPAUSE [Concomitant]
     Route: 048
  9. THYROID TAB [Concomitant]
     Indication: THYROID DISORDER
     Route: 048
  10. BUPROPION HCL [Concomitant]
     Indication: DEPRESSION
     Dosage: 150 MILLIGRAM;
     Route: 048
  11. ESOMEPRAZOLE MAGNESIUM [Concomitant]
     Indication: GASTROOESOPHAGEAL REFLUX DISEASE
     Dosage: 40 MILLIGRAM;
     Route: 048
  12. SIMVASTATIN [Concomitant]
     Indication: BLOOD CHOLESTEROL
     Route: 048

REACTIONS (3)
  - DISTURBANCE IN ATTENTION [None]
  - INSOMNIA [None]
  - INITIAL INSOMNIA [None]
